FAERS Safety Report 7135309-4 (Version None)
Quarter: 2010Q4

REPORT INFORMATION
  Report Type: 
  Country: None (occurrence: None)
  Receive Date: 20101203
  Receipt Date: 20101124
  Transmission Date: 20110411
  Serious: Yes (Other)
  Sender: FDA-Public Use
  Company Number: B0685816A

PATIENT
  Age: 50 Year
  Sex: Male

DRUGS (2)
  1. VENTOLIN [Suspect]
     Indication: ASTHMA
     Dosage: 100MCG SIX TIMES PER DAY
     Route: 055
  2. BUDESONIDE [Concomitant]
     Indication: ASTHMA
     Dosage: 200MCG TWICE PER DAY
     Route: 055
     Dates: start: 20100101

REACTIONS (3)
  - DRUG DEPENDENCE [None]
  - MUSCLE SPASMS [None]
  - TREMOR [None]
